FAERS Safety Report 4986243-7 (Version None)
Quarter: 2006Q2

REPORT INFORMATION
  Report Type: 
  Country: None (occurrence: None)
  Receive Date: 20060428
  Receipt Date: 20060420
  Transmission Date: 20061013
  Serious: Yes (Death)
  Sender: FDA-Public Use
  Company Number: JP-JNJFOC-20060405188

PATIENT
  Age: 79 Year
  Sex: Female

DRUGS (3)
  1. CRAVIT [Suspect]
     Indication: URINARY TRACT INFECTION
     Route: 048
     Dates: start: 20060325, end: 20060330
  2. CEFMETAZON [Concomitant]
     Route: 042
     Dates: start: 20060401, end: 20060408
  3. CLARITHROMYCIN [Concomitant]
     Route: 048
     Dates: start: 20060331, end: 20060406

REACTIONS (2)
  - DEATH [None]
  - TOXIC EPIDERMAL NECROLYSIS [None]
